FAERS Safety Report 6973177-1 (Version None)
Quarter: 2010Q3

REPORT INFORMATION
  Report Type: 
  Country: None (occurrence: None)
  Receive Date: 20100824
  Receipt Date: 20100602
  Transmission Date: 20110219
  Serious: No
  Sender: FDA-Public Use
  Company Number: 309904

PATIENT
  Sex: Female

DRUGS (1)
  1. VICTOZA [Suspect]
     Indication: TYPE 2 DIABETES MELLITUS
     Dosage: 1.2 MG, QD, SUBCUTANEOUS
     Route: 058
     Dates: start: 20100615

REACTIONS (4)
  - FUNGAL SKIN INFECTION [None]
  - INCORRECT PRODUCT STORAGE [None]
  - INJECTION SITE ERYTHEMA [None]
  - INJECTION SITE RASH [None]
